FAERS Safety Report 9419000 (Version 3)
Quarter: 2013Q3

REPORT INFORMATION
  Report Type: Report from Study
  Country: BR (occurrence: BR)
  Receive Date: 20130725
  Receipt Date: 20130923
  Transmission Date: 20140515
  Serious: Yes (Disabling)
  Sender: FDA-Public Use
  Company Number: PHHY2013BR078547

PATIENT
  Age: 27 Year
  Sex: Female
  Weight: 75 kg

DRUGS (3)
  1. GILENYA [Suspect]
     Indication: MULTIPLE SCLEROSIS
     Dosage: 0.5 MG, QD
     Route: 048
     Dates: start: 20130627, end: 20130724
  2. GILENYA [Suspect]
     Dosage: 0.5 MG, QD
     Route: 048
     Dates: start: 20130823
  3. MINIMA (GESTODENE/ETHINYLESTRADIOL) [Concomitant]
     Indication: CONTRACEPTION

REACTIONS (4)
  - Balance disorder [Not Recovered/Not Resolved]
  - Tremor [Recovering/Resolving]
  - Dysgraphia [Not Recovered/Not Resolved]
  - Drug administration error [Unknown]
